FAERS Safety Report 5232190-5 (Version None)
Quarter: 2007Q1

REPORT INFORMATION
  Report Type: 
  Country: None (occurrence: None)
  Receive Date: 20070205
  Receipt Date: 20070119
  Transmission Date: 20070707
  Serious: Yes (Other)
  Sender: FDA-Public Use
  Company Number: 012796

PATIENT
  Age: 68 Year
  Sex: Male

DRUGS (7)
  1. PRIALT [Suspect]
     Indication: PAIN
     Dosage: ONCE/HOUR, INTRATHECAL
     Route: 037
  2. HYDROMORPHONE HCL [Concomitant]
  3. BUPIVACAINE [Concomitant]
  4. CLONIDINE [Concomitant]
  5. BACLOFEN [Concomitant]
  6. OPIOIDS [Concomitant]
  7. BENZODIAZEPINE DERIVATIVES [Concomitant]

REACTIONS (2)
  - DERMATITIS BULLOUS [None]
  - PAIN IN EXTREMITY [None]
